FAERS Safety Report 25521629 (Version 2)
Quarter: 2025Q3

REPORT INFORMATION
  Report Type: Report from Study
  Country: TR (occurrence: TR)
  Receive Date: 20250706
  Receipt Date: 20250810
  Transmission Date: 20251021
  Serious: Yes (Hospitalization)
  Sender: ALEXION PHARMACEUTICALS
  Company Number: TR-ASTRAZENECA-202506TUR024894TR

PATIENT
  Age: 14 Year
  Sex: Female

DRUGS (2)
  1. SOLIRIS [Suspect]
     Active Substance: ECULIZUMAB
     Indication: Thrombotic microangiopathy
  2. SOLIRIS [Suspect]
     Active Substance: ECULIZUMAB
     Indication: Renal transplant

REACTIONS (3)
  - Pulmonary oedema [Unknown]
  - Oliguria [Unknown]
  - Off label use [Unknown]

NARRATIVE: CASE EVENT DATE: 20250626
